FAERS Safety Report 21027510 (Version 1)
Quarter: 2022Q2

REPORT INFORMATION
  Report Type: Spontaneous
  Country: US (occurrence: US)
  Receive Date: 20220630
  Receipt Date: 20220630
  Transmission Date: 20220721
  Serious: No
  Sender: FDA-Public Use
  Company Number: US-ORGANON-O2206USA002297

PATIENT
  Age: 31 Year
  Sex: Female
  Weight: 80.272 kg

DRUGS (1)
  1. NEXPLANON [Suspect]
     Active Substance: ETONOGESTREL
     Indication: Contraception
     Dosage: 1 IMPLANT , LEFT ARM, DOSE/FREQUENCY: REPORTED AS 60MG
     Route: 059
     Dates: start: 20220228

REACTIONS (2)
  - Weight increased [Not Recovered/Not Resolved]
  - Menstrual disorder [Not Recovered/Not Resolved]

NARRATIVE: CASE EVENT DATE: 20220201
